FAERS Safety Report 14651850 (Version 2)
Quarter: 2018Q2

REPORT INFORMATION
  Report Type: Spontaneous
  Country: JP (occurrence: JP)
  Receive Date: 20180317
  Receipt Date: 20180522
  Transmission Date: 20180711
  Serious: Yes (Other)
  Sender: FDA-Public Use
  Company Number: JP-AMGEN-JPNSP2018036813

PATIENT
  Age: 68 Year
  Sex: Male

DRUGS (6)
  1. BENZBROMARONE [Concomitant]
     Active Substance: BENZBROMARONE
     Dosage: 50
  2. ENBREL [Suspect]
     Active Substance: ETANERCEPT
     Indication: RHEUMATOID ARTHRITIS
     Dosage: 25 MG, UNK
     Route: 058
     Dates: start: 20180227, end: 20180302
  3. CELECOX [Concomitant]
     Active Substance: CELECOXIB
     Dosage: 100
  4. FEBURIC [Concomitant]
     Active Substance: FEBUXOSTAT
     Dosage: 10
  5. TEPRENONE [Concomitant]
     Active Substance: TEPRENONE
     Dosage: UNK
  6. METHOTREXATE SODIUM. [Concomitant]
     Active Substance: METHOTREXATE SODIUM
     Dosage: UNK

REACTIONS (3)
  - Arrhythmia [Recovered/Resolved]
  - Dyspnoea [Recovered/Resolved]
  - Chest pain [Recovered/Resolved]

NARRATIVE: CASE EVENT DATE: 20180227
